FAERS Safety Report 17487778 (Version 2)
Quarter: 2020Q1

REPORT INFORMATION
  Report Type: Spontaneous
  Country: US (occurrence: US)
  Receive Date: 20200303
  Receipt Date: 20200319
  Transmission Date: 20200409
  Serious: Yes (Hospitalization, Other)
  Sender: FDA-Public Use
  Company Number: US-AUROBINDO-AUR-APL-2020-004242

PATIENT
  Age: 45 Year
  Sex: Male
  Weight: 79 kg

DRUGS (3)
  1. CLOZAPINE TABLET [Suspect]
     Active Substance: CLOZAPINE
     Indication: SCHIZOPHRENIA
     Dosage: 3 DOSAGE FORM, ONCE A DAY
     Route: 065
     Dates: end: 20200131
  2. KLONOPIN [Concomitant]
     Active Substance: CLONAZEPAM
     Indication: PRODUCT USED FOR UNKNOWN INDICATION
     Dosage: UNK
     Route: 065
  3. TAXOL [Concomitant]
     Active Substance: PACLITAXEL
     Indication: PRODUCT USED FOR UNKNOWN INDICATION
     Dosage: UNK
     Route: 065

REACTIONS (6)
  - Drug withdrawal syndrome [Recovered/Resolved]
  - Suicide attempt [Recovered/Resolved]
  - Catatonia [Recovered/Resolved]
  - Malaise [Recovered/Resolved]
  - Condition aggravated [Recovered/Resolved]
  - Treatment noncompliance [Unknown]
